FAERS Safety Report 23499732 (Version 2)
Quarter: 2024Q1

REPORT INFORMATION
  Report Type: Spontaneous
  Country: US (occurrence: None)
  Receive Date: 20240208
  Receipt Date: 20240215
  Transmission Date: 20240410
  Serious: Yes (Hospitalization, Other)
  Sender: FDA-Public Use
  Company Number: US-ROCHE-2823375

PATIENT
  Age: 61 Year
  Sex: Female
  Weight: 88.53 kg

DRUGS (14)
  1. ACTEMRA [Suspect]
     Active Substance: TOCILIZUMAB
     Indication: Rheumatoid arthritis
     Route: 058
  2. ACTEMRA [Suspect]
     Active Substance: TOCILIZUMAB
  3. ACTEMRA [Suspect]
     Active Substance: TOCILIZUMAB
     Indication: Rheumatoid arthritis
  4. ACTEMRA [Suspect]
     Active Substance: TOCILIZUMAB
  5. ACTEMRA [Suspect]
     Active Substance: TOCILIZUMAB
     Indication: Rheumatoid arthritis
  6. ACTEMRA [Suspect]
     Active Substance: TOCILIZUMAB
  7. RITUXAN [Suspect]
     Active Substance: RITUXIMAB
     Indication: Rheumatoid arthritis
     Dosage: INFUSED SLOWLY AND INCREASED EVERY 45 MINUTES (THEY WOULD TURN IT UP A LITTLE AT A TIME)
     Route: 042
  8. CALCIUM [Concomitant]
     Active Substance: CALCIUM
     Route: 048
  9. CALCIUM [Concomitant]
     Active Substance: CALCIUM
     Route: 048
  10. MELOXICAM [Concomitant]
     Active Substance: MELOXICAM
     Dosage: IN MORNING AND EVENING
     Route: 048
     Dates: start: 202312
  11. ALDACTONE [Concomitant]
     Active Substance: SPIRONOLACTONE
     Indication: Arthritis
     Dosage: FOR 14 DAYS AND REPEAT AS NEEDED
     Route: 048
     Dates: start: 202312
  12. IBUPROFEN [Concomitant]
     Active Substance: IBUPROFEN
     Indication: Pain
     Route: 048
  13. IBUPROFEN [Concomitant]
     Active Substance: IBUPROFEN
     Indication: Musculoskeletal stiffness
  14. LISINOPRILHYDROCHLOROTHIAZIDE RATIOPHARM [Concomitant]
     Indication: Hypertension
     Dosage: 20 MG/25 MG
     Route: 048

REACTIONS (17)
  - Pain [Unknown]
  - Swelling [Unknown]
  - Cartilage injury [Unknown]
  - Anaphylactic reaction [Recovered/Resolved]
  - Fear of injection [Unknown]
  - Hypertension [Not Recovered/Not Resolved]
  - Blood glucose increased [Recovered/Resolved]
  - Pollakiuria [Unknown]
  - Fall [Unknown]
  - Tibia fracture [Recovered/Resolved]
  - Lower limb fracture [Recovered/Resolved]
  - Oedema [Unknown]
  - Inflammation [Unknown]
  - Joint swelling [Unknown]
  - Staphylococcal infection [Recovered/Resolved]
  - Device malfunction [Unknown]
  - Exposure via skin contact [Unknown]

NARRATIVE: CASE EVENT DATE: 20180101
